FAERS Safety Report 23638058 (Version 5)
Quarter: 2024Q2

REPORT INFORMATION
  Report Type: Spontaneous
  Country: US (occurrence: US)
  Receive Date: 20240315
  Receipt Date: 20240405
  Transmission Date: 20240715
  Serious: Yes (Other)
  Sender: FDA-Public Use
  Company Number: US-APELLIS PHARMACEUTICALS-APL-2024-004287

PATIENT
  Sex: Female

DRUGS (5)
  1. SYFOVRE [Suspect]
     Active Substance: PEGCETACOPLAN
     Indication: Dry age-related macular degeneration
     Dosage: EVERY 5 WEEKS OS
  2. SYFOVRE [Suspect]
     Active Substance: PEGCETACOPLAN
     Dosage: EVERY 5 WEEKS OD
  3. SYFOVRE [Suspect]
     Active Substance: PEGCETACOPLAN
     Dosage: UNK OD
     Dates: start: 20240304, end: 20240304
  4. PREDNISONE [Concomitant]
     Active Substance: PREDNISONE
     Indication: Product used for unknown indication
     Dosage: UNK
  5. VABYSMO [Concomitant]
     Active Substance: FARICIMAB\FARICIMAB-SVOA
     Indication: Neovascular age-related macular degeneration
     Dosage: UNK

REACTIONS (5)
  - Blindness [Not Recovered/Not Resolved]
  - Hypopyon [Unknown]
  - Bacterial endophthalmitis [Unknown]
  - Retinal haemorrhage [Unknown]
  - Intraocular pressure increased [Unknown]

NARRATIVE: CASE EVENT DATE: 20240307
